FAERS Safety Report 6589564-X (Version None)
Quarter: 2010Q1

REPORT INFORMATION
  Report Type: 
  Country: None (occurrence: None)
  Receive Date: 20100212
  Receipt Date: 20100122
  Transmission Date: 20100710
  Serious: Yes (Hospitalization)
  Sender: FDA-Public Use
  Company Number: DSA_42466_2010

PATIENT
  Age: 17 Year
  Sex: Female

DRUGS (2)
  1. ENALAPRIL MALEATE [Suspect]
     Indication: DRUG USE FOR UNKNOWN INDICATION
     Dosage: (20 MG BID ORAL)
     Route: 048
     Dates: start: 20040101
  2. AMLODIPINE [Concomitant]

REACTIONS (3)
  - HEADACHE [None]
  - PARAESTHESIA [None]
  - VOMITING [None]
